FAERS Safety Report 8226274-7 (Version None)
Quarter: 2012Q1

REPORT INFORMATION
  Report Type: 
  Country: None (occurrence: None)
  Receive Date: 20120321
  Receipt Date: 20120312
  Transmission Date: 20120608
  Serious: Yes (Hospitalization)
  Sender: FDA-Public Use
  Company Number: PHHY2012BR022011

PATIENT
  Sex: Female

DRUGS (14)
  1. APRESOLINE [Concomitant]
     Indication: BLOOD PRESSURE
     Dosage: 1 TABLET EVERY 8 HOURS
  2. CALCIUM CARBONATE [Concomitant]
     Indication: RENAL DISORDER
     Dosage: 2 TABLETS DAILY
  3. IRBESARTAN [Concomitant]
     Indication: BLOOD PRESSURE
     Dosage: 1 TABLET AT MORNING
  4. ISOSORBIDE MONONITRATE [Concomitant]
     Indication: CARDIAC DISORDER
     Dosage: 2 TABLETS DAILY
  5. EXELON [Suspect]
     Dosage: 9.5 MG/24HOURS
     Route: 062
  6. INDAPAMIDE [Concomitant]
     Indication: BLOOD PRESSURE
     Dosage: 1 TABLET AT MORNING
  7. RISPERIDONE [Concomitant]
     Indication: SEDATION
     Dosage: 0.5 TABLET AT NIGHT
  8. TAPAZOL [Concomitant]
     Indication: THYROID DISORDER
     Dosage: 1 TABLET AT MORNING
  9. MEMANTINE HYDROCHLORIDE [Concomitant]
     Dosage: 1 TABLET EVERY 12 HOURS
  10. ASPIRIN [Concomitant]
     Indication: MYOCARDIAL INFARCTION
  11. ADALAT [Concomitant]
     Indication: BLOOD PRESSURE
     Dosage: 1 TABLET EVERY 12 HOURS
  12. NOVOLIN 70/30 [Concomitant]
     Indication: DIABETES MELLITUS
     Dosage: 16 UI AT MORNING 1UI AT NIGHT
     Dates: start: 19880101
  13. ASPIRIN [Concomitant]
     Indication: PROPHYLAXIS
     Dosage: 1 TABLET AT LUNCH
  14. METHYLDOPA [Concomitant]
     Indication: BLOOD PRESSURE
     Dosage: 1 TABLET EVERY 8 HOURS

REACTIONS (5)
  - LOSS OF CONSCIOUSNESS [None]
  - SCREAMING [None]
  - BRUXISM [None]
  - AGITATION [None]
  - PERIPHERAL COLDNESS [None]
